FAERS Safety Report 23311290 (Version 4)
Quarter: 2024Q3

REPORT INFORMATION
  Report Type: Spontaneous
  Country: JP (occurrence: JP)
  Receive Date: 20231219
  Receipt Date: 20240813
  Transmission Date: 20241017
  Serious: Yes (Hospitalization, Other)
  Sender: ABBVIE
  Company Number: None

PATIENT
  Age: 58 Year
  Sex: Female
  Weight: 52 kg

DRUGS (4)
  1. BOTOX [Suspect]
     Active Substance: ONABOTULINUMTOXINA
     Indication: Muscle spasms
     Dosage: TIME INTERVAL: AS NECESSARY: DOSE: DOSE: 40 IU, SINGLE
     Route: 030
     Dates: start: 20140227, end: 20140227
  2. BOTOX [Suspect]
     Active Substance: ONABOTULINUMTOXINA
     Indication: Muscle spasms
     Dosage: TIME INTERVAL: AS NECESSARY: DOSE: 200 IU, SINGLE
     Route: 030
     Dates: start: 20140227, end: 20140227
  3. BOTOX [Suspect]
     Active Substance: ONABOTULINUMTOXINA
     Indication: Muscle spasms
     Dosage: TIME INTERVAL: AS NECESSARY: DOSE: 400 IU, FREQUENCY TEXT: EVERY 3 MONTHS
     Route: 030
     Dates: start: 20130829, end: 20130829
  4. BOTOX [Suspect]
     Active Substance: ONABOTULINUMTOXINA
     Indication: Muscle spasms
     Dosage: TIME INTERVAL: AS NECESSARY: DOSE: 300 IU
     Route: 030
     Dates: start: 20200521, end: 20200521

REACTIONS (5)
  - Joint dislocation [Recovered/Resolved]
  - Arthralgia [Recovered/Resolved]
  - Joint instability [Recovered/Resolved]
  - Joint instability [Unknown]
  - Prescribed overdose [Unknown]

NARRATIVE: CASE EVENT DATE: 20140301
